FAERS Safety Report 13757570 (Version 5)
Quarter: 2018Q1

REPORT INFORMATION
  Report Type: Spontaneous
  Country: US (occurrence: US)
  Receive Date: 20170717
  Receipt Date: 20180315
  Transmission Date: 20180508
  Serious: No
  Sender: FDA-Public Use
  Company Number: US-BIOGEN-2017BI00430541

PATIENT
  Age: 40 Year
  Sex: Female

DRUGS (2)
  1. AVONEX [Suspect]
     Active Substance: INTERFERON BETA-1A
     Indication: MULTIPLE SCLEROSIS
     Route: 030
     Dates: start: 19960610, end: 19980610
  2. AVONEX [Suspect]
     Active Substance: INTERFERON BETA-1A
     Route: 030
     Dates: start: 19970715, end: 19980715

REACTIONS (9)
  - Feeling abnormal [Unknown]
  - Feeling hot [Unknown]
  - Anxiety [Recovered/Resolved]
  - Lymphocyte count decreased [Unknown]
  - Nausea [Recovered/Resolved]
  - Chills [Unknown]
  - Multiple sclerosis [Unknown]
  - Feeling cold [Unknown]
  - Vertigo [Not Recovered/Not Resolved]

NARRATIVE: CASE EVENT DATE: 19960610
